FAERS Safety Report 23632688 (Version 1)
Quarter: 2024Q1

REPORT INFORMATION
  Report Type: Spontaneous
  Country: US (occurrence: US)
  Receive Date: 20240314
  Receipt Date: 20240314
  Transmission Date: 20240410
  Serious: No
  Sender: FDA-Public Use
  Company Number: ENDB23-04204

PATIENT
  Age: 71 Year
  Sex: Female

DRUGS (2)
  1. XIAFLEX [Suspect]
     Active Substance: COLLAGENASE CLOSTRIDIUM HISTOLYTICUM
     Indication: Dupuytren^s contracture
     Dosage: UNK MILLIGRAM, UNKNOWN
     Route: 051
  2. XIAFLEX [Suspect]
     Active Substance: COLLAGENASE CLOSTRIDIUM HISTOLYTICUM
     Dosage: UNK MILLIGRAM, UNKNOWN (0.2 MG IN LEFT SMALL FINGER, 0.5 MG SPIRAL, 0.2 MG RETRO, 0.2 MG IN RIGHT SM
     Route: 051

REACTIONS (2)
  - Contusion [Unknown]
  - Off label use [Unknown]
